FAERS Safety Report 5669216-0 (Version None)
Quarter: 2008Q1

REPORT INFORMATION
  Report Type: 
  Country: None (occurrence: None)
  Receive Date: 20080317
  Receipt Date: 20080305
  Transmission Date: 20080703
  Serious: Yes (Other)
  Sender: FDA-Public Use
  Company Number: PHRM2007FR01335

PATIENT
  Sex: Female
  Weight: 56 kg

DRUGS (1)
  1. GLEEVEC [Suspect]
     Indication: CHRONIC MYELOID LEUKAEMIA
     Dosage: 400 MG DAILY
     Route: 048
     Dates: start: 20051001

REACTIONS (12)
  - BLISTER [None]
  - EYELID OEDEMA [None]
  - FALL [None]
  - HAEMATOMA [None]
  - IMPAIRED HEALING [None]
  - INFLAMMATION [None]
  - MUSCLE SPASMS [None]
  - PIGMENTATION DISORDER [None]
  - PURPURA [None]
  - SKIN ATROPHY [None]
  - SKIN ULCER [None]
  - TELANGIECTASIA [None]
